FAERS Safety Report 20905388 (Version 1)
Quarter: 2022Q2

REPORT INFORMATION
  Report Type: Spontaneous
  Country: AT (occurrence: AT)
  Receive Date: 20220602
  Receipt Date: 20220602
  Transmission Date: 20220721
  Serious: Yes (Life-Threatening, Hospitalization)
  Sender: FDA-Public Use
  Company Number: None

PATIENT
  Age: 67 Year
  Sex: Male
  Weight: 78 kg

DRUGS (4)
  1. AZACITIDINE [Suspect]
     Active Substance: AZACITIDINE
     Indication: Acute myeloid leukaemia
     Dosage: UNK
     Dates: start: 20220101, end: 20220128
  2. VENETOCLAX [Suspect]
     Active Substance: VENETOCLAX
     Indication: Acute myeloid leukaemia
     Dosage: 100 MILLIGRAM, QD, 1ST DAY 100 MG, 2ND DAY 200 MG, FROM DAY 3 400 MG
     Dates: start: 20220101, end: 20220101
  3. VENETOCLAX [Suspect]
     Active Substance: VENETOCLAX
     Dosage: 200 MILLIGRAM, QD, 1ST DAY 100 MG, 2ND DAY 200 MG, FROM DAY 3 400 MG
     Dates: start: 20220102, end: 20220102
  4. VENETOCLAX [Suspect]
     Active Substance: VENETOCLAX
     Dosage: 400 MILLIGRAM, QD, 1ST DAY 100 MG, 2ND DAY 200 MG, FROM DAY 3 400 MG
     Dates: start: 20220103, end: 20220128

REACTIONS (2)
  - Refractoriness to platelet transfusion [Not Recovered/Not Resolved]
  - Pancytopenia [Not Recovered/Not Resolved]

NARRATIVE: CASE EVENT DATE: 20220301
